FAERS Safety Report 4430785-X (Version None)
Quarter: 2004Q3

REPORT INFORMATION
  Report Type: 
  Country: None (occurrence: None)
  Receive Date: 20040823
  Receipt Date: 20040819
  Transmission Date: 20050211
  Serious: Yes (Life-Threatening, Hospitalization)
  Sender: FDA-Public Use
  Company Number: IT-BRISTOL-MYERS SQUIBB COMPANY-12676912

PATIENT
  Age: 63 Year
  Sex: Male

DRUGS (13)
  1. BLENOXANE [Suspect]
     Dates: start: 20040609, end: 20040609
  2. CYTOXAN [Suspect]
     Dates: start: 20040602, end: 20040602
  3. ETOPOPHOS [Suspect]
     Dates: start: 20040602, end: 20040602
  4. BLINDED: DARBEPOETIN ALFA [Suspect]
     Indication: ANAEMIA OF MALIGNANT DISEASE
     Dosage: BLINDED DOSE AND FREQUENCY
     Route: 058
     Dates: start: 20040601
  5. NEUPOGEN [Suspect]
     Dates: start: 20040609, end: 20040618
  6. ADRIAMYCIN PFS [Suspect]
     Dates: start: 20040602, end: 20040602
  7. PROCARBAZINE [Suspect]
     Dates: start: 20040602, end: 20040602
  8. PREDNISONE [Suspect]
     Dates: start: 20040602, end: 20040602
  9. ITRACONAZOLE [Concomitant]
  10. INSULIN [Concomitant]
  11. ENALAPRIL MALEATE [Concomitant]
  12. OMEPRAZOLE [Concomitant]
  13. CIPROFLOXACIN [Concomitant]

REACTIONS (1)
  - PULMONARY EMBOLISM [None]
